FAERS Safety Report 18215071 (Version 1)
Quarter: 2020Q3

REPORT INFORMATION
  Report Type: Spontaneous
  Country: US (occurrence: US)
  Receive Date: 20200831
  Receipt Date: 20200831
  Transmission Date: 20201103
  Serious: No
  Sender: FDA-Public Use
  Company Number: NVSC2020US236191

PATIENT
  Sex: Female

DRUGS (3)
  1. ANASTROZOLE. [Suspect]
     Active Substance: ANASTROZOLE
     Indication: PRODUCT USED FOR UNKNOWN INDICATION
     Dosage: UNK
     Route: 065
  2. IBRANCE [Suspect]
     Active Substance: PALBOCICLIB
     Indication: BREAST CANCER
     Dosage: 75 MG, QD (FOR 21 DAYS AND OFF FOR 7 DAYS)
     Route: 048
     Dates: start: 20200313, end: 202006
  3. LETROZOLE. [Suspect]
     Active Substance: LETROZOLE
     Indication: BREAST CANCER
     Dosage: UNK
     Route: 065

REACTIONS (6)
  - Nausea [Unknown]
  - Malaise [Unknown]
  - Full blood count decreased [Unknown]
  - Feeling abnormal [Unknown]
  - Back pain [Unknown]
  - Diarrhoea [Unknown]
